FAERS Safety Report 10534825 (Version 2)
Quarter: 2014Q4

REPORT INFORMATION
  Report Type: Spontaneous
  Country: DE (occurrence: DE)
  Receive Date: 20141022
  Receipt Date: 20141023
  Transmission Date: 20150529
  Serious: Yes (Other)
  Sender: FDA-Public Use
  Company Number: DE-PFIZER INC-2014286843

PATIENT
  Age: 5 Decade
  Sex: Female

DRUGS (10)
  1. AMITRIPTYLINE [Suspect]
     Active Substance: AMITRIPTYLINE
     Indication: PSYCHOSOMATIC DISEASE
  2. KATADOLON [Suspect]
     Active Substance: FLUPIRTINE
     Indication: PSYCHOSOMATIC DISEASE
  3. TAVOR [Suspect]
     Active Substance: LORAZEPAM
     Indication: PSYCHOSOMATIC DISEASE
  4. TREVILOR RETARD [Suspect]
     Active Substance: VENLAFAXINE HYDROCHLORIDE
     Indication: HEADACHE
  5. TREVILOR RETARD [Suspect]
     Active Substance: VENLAFAXINE HYDROCHLORIDE
     Indication: PSYCHOSOMATIC DISEASE
  6. LYRICA [Suspect]
     Active Substance: PREGABALIN
     Indication: PSYCHOSOMATIC DISEASE
  7. LYRICA [Suspect]
     Active Substance: PREGABALIN
     Indication: HEADACHE
  8. TAVOR [Suspect]
     Active Substance: LORAZEPAM
     Indication: HEADACHE
  9. AMITRIPTYLINE [Suspect]
     Active Substance: AMITRIPTYLINE
     Indication: HEADACHE
  10. KATADOLON [Suspect]
     Active Substance: FLUPIRTINE
     Indication: HEADACHE

REACTIONS (6)
  - Chills [Unknown]
  - Tremor [Unknown]
  - Abdominal pain [Unknown]
  - Jaw disorder [Unknown]
  - Hypertension [Unknown]
  - Myalgia [Unknown]
